FAERS Safety Report 19606002 (Version 4)
Quarter: 2021Q4

REPORT INFORMATION
  Report Type: Other
  Country: DE (occurrence: None)
  Receive Date: 20210723
  Receipt Date: 20211231
  Transmission Date: 20220303
  Serious: Yes (Other)
  Sender: FDA-Public Use
  Company Number: DE-ROCHE-2762462

PATIENT
  Age: 44 Year
  Sex: Female

DRUGS (6)
  1. OCREVUS [Suspect]
     Active Substance: OCRELIZUMAB
     Indication: Relapsing-remitting multiple sclerosis
     Route: 042
     Dates: start: 20210120
  2. COVID-19 VACCINE NOS [Suspect]
     Active Substance: COVID-19 VACCINE NOS
     Indication: COVID-19 prophylaxis
     Route: 065
  3. COVID-19 VACCINE NOS [Suspect]
     Active Substance: COVID-19 VACCINE NOS
     Dosage: SECOND DOSE
     Route: 065
     Dates: start: 20210531
  4. MAGNESIUM [Concomitant]
     Active Substance: MAGNESIUM
     Indication: Nutritional supplementation
  5. CALCIUM [Concomitant]
     Active Substance: CALCIUM
     Indication: Nutritional supplementation
  6. BACLOFEN [Concomitant]
     Active Substance: BACLOFEN

REACTIONS (5)
  - Multiple sclerosis [Recovering/Resolving]
  - Fatigue [Recovered/Resolved]
  - Urinary tract infection [Recovered/Resolved]
  - Drug ineffective [Unknown]
  - Genital infection fungal [Recovered/Resolved]

NARRATIVE: CASE EVENT DATE: 20210120
